FAERS Safety Report 12223389 (Version 2)
Quarter: 2016Q2

REPORT INFORMATION
  Report Type: Spontaneous
  Country: US (occurrence: DE)
  Receive Date: 20160330
  Receipt Date: 20160414
  Transmission Date: 20160815
  Serious: Yes (Hospitalization)
  Sender: FDA-Public Use
  Company Number: DE-IPCA LABORATORIES LIMITED-IPC201603-000365

PATIENT
  Age: 80 Year
  Sex: Female
  Weight: 71 kg

DRUGS (6)
  1. CANDESARTAN [Concomitant]
     Active Substance: CANDESARTAN
  2. L-DOPA AND BENSERAZIDE [Concomitant]
  3. CELIPROLOL [Concomitant]
     Active Substance: CELIPROLOL
  4. HYDROCHLOROTHIAZIDE. [Suspect]
     Active Substance: HYDROCHLOROTHIAZIDE
  5. CIPRAMIL [Concomitant]
     Active Substance: CITALOPRAM HYDROBROMIDE
  6. ACETYLSALICYLIC ACID [Concomitant]
     Active Substance: ASPIRIN

REACTIONS (5)
  - Hypoosmolar state [Recovered/Resolved]
  - Altered state of consciousness [Recovered/Resolved]
  - Nervous system disorder [Recovered/Resolved]
  - Hyponatraemia [Recovered/Resolved]
  - Amnesia [Unknown]
